FAERS Safety Report 10625907 (Version 1)
Quarter: 2014Q4

REPORT INFORMATION
  Report Type: Spontaneous
  Country: US (occurrence: US)
  Receive Date: 20141204
  Receipt Date: 20141204
  Transmission Date: 20150529
  Serious: Yes (Other)
  Sender: FDA-Public Use
  Company Number: US-PFIZER INC-2014331989

PATIENT
  Age: 77 Year
  Sex: Female

DRUGS (2)
  1. LYRICA [Suspect]
     Active Substance: PREGABALIN
     Dosage: 75 MG, 3X/DAY
  2. LYRICA [Suspect]
     Active Substance: PREGABALIN
     Dosage: 50 MG, 3X/DAY

REACTIONS (6)
  - Hypoacusis [Unknown]
  - Feeling abnormal [Unknown]
  - Neuralgia [Unknown]
  - Sinusitis [Unknown]
  - Limb discomfort [Unknown]
  - Drug ineffective [Unknown]
